FAERS Safety Report 4838157-0 (Version None)
Quarter: 2005Q4

REPORT INFORMATION
  Report Type: 
  Country: None (occurrence: None)
  Receive Date: 20051123
  Receipt Date: 20051123
  Transmission Date: 20060501
  Serious: Yes (Hospitalization)
  Sender: FDA-Public Use
  Company Number: None

PATIENT
  Sex: Male

DRUGS (13)
  1. AMLODIPINE [Suspect]
     Indication: CARDIAC FAILURE CONGESTIVE
     Dosage: PO
     Route: 048
  2. AMLODIPINE [Suspect]
     Indication: HYPERTENSION
     Dosage: PO
     Route: 048
  3. AMIODARONE [Suspect]
     Dosage: PO
     Route: 048
  4. DIGOXIN [Suspect]
     Indication: CARDIAC FAILURE CONGESTIVE
     Dosage: PO
     Route: 048
  5. CLONIDINE [Concomitant]
  6. LISINOPRIL [Concomitant]
  7. ACETAMINOPHEN [Concomitant]
  8. MINOXIDIL [Concomitant]
  9. NEPHRO CAPS [Concomitant]
  10. QUININE [Concomitant]
  11. EPOGEN [Concomitant]
  12. ALBUTEROL [Concomitant]
  13. CLOPIDOGREL BISULFATE [Concomitant]

REACTIONS (3)
  - BRADYCARDIA [None]
  - MENTAL STATUS CHANGES [None]
  - REFUSAL OF TREATMENT BY PATIENT [None]
